FAERS Safety Report 8574624-4 (Version None)
Quarter: 2012Q3

REPORT INFORMATION
  Report Type: 
  Country: None (occurrence: None)
  Receive Date: 20120807
  Receipt Date: 20120723
  Transmission Date: 20120928
  Serious: Yes (Death, Other)
  Sender: FDA-Public Use
  Company Number: DE-PAR PHARMACEUTICAL, INC-2012SCPR004518

PATIENT

DRUGS (25)
  1. MELPERONE [Interacting]
     Dosage: 225 MG, / DAY
     Route: 065
  2. OXAZEPAM [Concomitant]
     Indication: SLEEP PHASE RHYTHM DISTURBANCE
     Dosage: 20 MG, / DAY
     Route: 065
  3. RISPERIDONE [Interacting]
     Dosage: 1.5 MG, / DAY
     Route: 065
  4. HALOPERIDOL [Interacting]
     Indication: PRODUCT USED FOR UNKNOWN INDICATION
     Dosage: 5 MG, / DAY
     Route: 065
  5. ALFUZOSIN HCL [Interacting]
     Indication: PRODUCT USED FOR UNKNOWN INDICATION
     Dosage: 10 MG, / DAY
     Route: 065
  6. HYDROCHLOROTHIAZDE TAB [Concomitant]
     Indication: PRODUCT USED FOR UNKNOWN INDICATION
     Dosage: 25 MG, / DAY
     Route: 065
  7. LORAZEPAM [Concomitant]
     Indication: PRODUCT USED FOR UNKNOWN INDICATION
     Dosage: UP TO 2 MG
     Route: 065
  8. GALANTAMINE HYDROBROMIDE [Interacting]
     Indication: PRODUCT USED FOR UNKNOWN INDICATION
     Dosage: 16 MG, / DAY
     Route: 065
  9. MELPERONE [Interacting]
     Dosage: 300 MG, / DAY
     Route: 065
  10. MELPERONE [Interacting]
     Dosage: 225 MG, / DAY
     Route: 065
  11. MELPERONE [Interacting]
     Dosage: 250 MG, / DAY
     Route: 065
  12. OXAZEPAM [Concomitant]
     Dosage: 15 MG, / DAY
     Route: 065
  13. HALOPERIDOL [Interacting]
     Dosage: 3 MG, / DAY
     Route: 065
  14. HALOPERIDOL [Interacting]
     Dosage: 2.5 MG, / DAY
     Route: 065
  15. MELPERONE [Interacting]
     Dosage: 300 MG, / DAY
     Route: 065
  16. ISOSORBIDE DINITRATE [Concomitant]
     Indication: PRODUCT USED FOR UNKNOWN INDICATION
     Dosage: 120 MG, / DAY
     Route: 065
  17. RISPERIDONE [Suspect]
     Indication: PRODUCT USED FOR UNKNOWN INDICATION
     Dosage: 1 MG, / DAY
     Route: 065
  18. MELPERONE [Interacting]
     Dosage: 200 MG, / DAY
     Route: 065
  19. MELPERONE [Interacting]
     Indication: PRODUCT USED FOR UNKNOWN INDICATION
     Dosage: 25 TO 50 MG 4-TIMES A DAY
     Route: 065
  20. MELPERONE [Interacting]
     Dosage: 200 MG, / DAY
     Route: 065
  21. MELPERONE [Interacting]
     Dosage: 275 MG, / DAY
     Route: 065
  22. MELPERONE [Interacting]
     Dosage: 250 MG, / DAY
     Route: 065
  23. CAPTOPRIL [Concomitant]
     Indication: PRODUCT USED FOR UNKNOWN INDICATION
     Dosage: 50 MG, / DAY
     Route: 065
  24. ACETYLSALICYLIC ACID [Concomitant]
     Indication: PRODUCT USED FOR UNKNOWN INDICATION
     Dosage: 100 MG, / DAY
     Route: 065
  25. BISOPROLOL FUMARATE [Concomitant]
     Indication: PRODUCT USED FOR UNKNOWN INDICATION
     Dosage: 5 MG, / DAY
     Route: 065

REACTIONS (7)
  - BUNDLE BRANCH BLOCK RIGHT [None]
  - DRUG INTERACTION [None]
  - EMBOLISM [None]
  - HYPOTENSION [None]
  - SUDDEN DEATH [None]
  - ARRHYTHMIA [None]
  - RENAL FAILURE [None]
